FAERS Safety Report 6171760-7 (Version None)
Quarter: 2009Q2

REPORT INFORMATION
  Report Type: 
  Country: None (occurrence: None)
  Receive Date: 20090428
  Receipt Date: 20090428
  Transmission Date: 20091009
  Serious: Yes (Life-Threatening)
  Sender: FDA-Public Use
  Company Number: None

PATIENT
  Age: 62 Year
  Sex: Male

DRUGS (9)
  1. LISINOPRIL [Suspect]
     Indication: HYPERTENSION
     Dosage: 10 MG DAILY PO
     Route: 048
     Dates: start: 20080717, end: 20080717
  2. LABETALOL HCL [Concomitant]
  3. HYDROCHLOROTHIAZIDE [Concomitant]
  4. CLONIDINE [Concomitant]
  5. CLONIDINE [Concomitant]
  6. HYDRALAZINE HCL [Concomitant]
  7. NORVASC [Concomitant]
  8. LASIX [Concomitant]
  9. ALLOPURINOL [Concomitant]

REACTIONS (2)
  - ANGIOEDEMA [None]
  - WHEEZING [None]
